FAERS Safety Report 24334270 (Version 3)
Quarter: 2025Q3

REPORT INFORMATION
  Report Type: Spontaneous
  Country: EU (occurrence: EU)
  Receive Date: 20240918
  Receipt Date: 20250803
  Transmission Date: 20251020
  Serious: Yes (Other)
  Sender: ALEXION PHARMACEUTICALS
  Company Number: EU-AstraZeneca-CH-00696527A

PATIENT
  Age: 48 Year
  Sex: Female
  Weight: 72 kg

DRUGS (11)
  1. SOLIRIS [Suspect]
     Active Substance: ECULIZUMAB
     Indication: Neuromyelitis optica spectrum disorder
  2. SOLIRIS [Suspect]
     Active Substance: ECULIZUMAB
  3. MYCOPHENOLATE MOFETIL [Concomitant]
     Active Substance: MYCOPHENOLATE MOFETIL
     Dosage: 500 MILLIGRAM, QD
     Route: 065
     Dates: start: 202102
  4. PREDNISONE [Concomitant]
     Active Substance: PREDNISONE
     Dosage: 5 MILLIGRAM, QOD
     Route: 065
  5. CardioASA [Concomitant]
     Dosage: 100 MILLIGRAM, QD
     Route: 065
  6. PANTOPRAZOLE SODIUM [Concomitant]
     Active Substance: PANTOPRAZOLE SODIUM
     Dosage: 40 MILLIGRAM, QD
     Route: 065
  7. INDERAL [Concomitant]
     Active Substance: PROPRANOLOL HYDROCHLORIDE
     Dosage: 40 MILLIGRAM, 1/2, QD
     Route: 065
  8. LYRICA [Concomitant]
     Active Substance: PREGABALIN
     Dosage: 25 MILLIGRAM, QD
     Route: 065
  9. CHOLECALCIFEROL [Concomitant]
     Active Substance: CHOLECALCIFEROL
     Route: 065
  10. Tavor [Concomitant]
     Dosage: 1 MILLIGRAM, QD
     Route: 065
  11. ATORVASTATIN [Concomitant]
     Active Substance: ATORVASTATIN
     Dosage: 20 MILLIGRAM, QD
     Route: 065

REACTIONS (14)
  - Malignant melanoma [Recovered/Resolved]
  - Systemic lupus erythematosus [Unknown]
  - Lymphoproliferative disorder [Unknown]
  - Autoimmune thyroiditis [Unknown]
  - Lymphadenopathy [Recovered/Resolved]
  - Dyslipidaemia [Unknown]
  - Upper respiratory tract infection [Unknown]
  - Spinal pain [Recovering/Resolving]
  - Paraesthesia [Unknown]
  - Peristalsis visible [Unknown]
  - Back pain [Unknown]
  - Dysaesthesia [Unknown]
  - Seborrhoeic keratosis [Unknown]
  - Swelling [Unknown]

NARRATIVE: CASE EVENT DATE: 20230517
